FAERS Safety Report 9862636 (Version 1)
Quarter: 2014Q1

REPORT INFORMATION
  Report Type: Spontaneous
  Country: US (occurrence: US)
  Receive Date: 20140203
  Receipt Date: 20140203
  Transmission Date: 20141002
  Serious: Yes (Death)
  Sender: FDA-Public Use
  Company Number: CHPA2014US001781

PATIENT
  Age: 61 Year
  Sex: Male

DRUGS (5)
  1. SLOW FE BROWN [Suspect]
     Dosage: UNK
     Route: 065
  2. INSULIN [Suspect]
     Dosage: UNK
     Route: 065
  3. BUMETANIDE [Suspect]
     Dosage: UNK
     Route: 065
  4. FOLIC ACID [Suspect]
     Dosage: UNK
     Route: 065
  5. OMEPRAZOLE [Suspect]
     Dosage: UNK
     Route: 065

REACTIONS (1)
  - Completed suicide [Fatal]
